FAERS Safety Report 9482930 (Version 1)
Quarter: 2013Q3

REPORT INFORMATION
  Report Type: Spontaneous
  Country: US (occurrence: US)
  Receive Date: 20130828
  Receipt Date: 20130828
  Transmission Date: 20140515
  Serious: Yes (Hospitalization, Other)
  Sender: FDA-Public Use
  Company Number: US-AMGEN-KDL242560

PATIENT
  Age: 76 Year
  Sex: Male

DRUGS (2)
  1. ENBREL [Suspect]
     Indication: PSORIATIC ARTHROPATHY
     Dosage: 50 MG, QWK
     Route: 058
     Dates: start: 20041001
  2. ENBREL [Suspect]
     Indication: PSORIASIS

REACTIONS (3)
  - Myocardial infarction [Unknown]
  - Coronary artery bypass [Unknown]
  - Squamous cell carcinoma [Not Recovered/Not Resolved]
